FAERS Safety Report 9741884 (Version 2)
Quarter: 2013Q4

REPORT INFORMATION
  Report Type: Spontaneous
  Country: US (occurrence: US)
  Receive Date: 20131210
  Receipt Date: 20131210
  Transmission Date: 20140711
  Serious: Yes (Other)
  Sender: FDA-Public Use
  Company Number: US-BEH-2012033850

PATIENT
  Age: 60 Year
  Sex: Female
  Weight: 137 kg

DRUGS (31)
  1. PRIVIGEN [Suspect]
     Indication: IMMUNODEFICIENCY COMMON VARIABLE
     Route: 042
     Dates: start: 20121017, end: 20121017
  2. PRIVIGEN [Suspect]
     Dosage: 20 GM VIAL; 600ML/5 HOURS
     Route: 042
  3. COUMADIN [Concomitant]
  4. CIPRO [Concomitant]
  5. HYDROCODONE-ACETAMINOPHEN [Concomitant]
  6. CLARITIN [Concomitant]
  7. COMPLETE MULTIVITAMIN [Concomitant]
  8. DIPHENHYDRAMINE HYDROCHLORIDE [Concomitant]
     Indication: PREMEDICATION
  9. SODIUM CHLORIDE [Concomitant]
  10. EPI-PEN [Concomitant]
     Indication: PREMEDICATION
  11. SOLU-MEDROL [Concomitant]
  12. ASTELIN [Concomitant]
  13. NASONEX [Concomitant]
  14. VALTREX [Concomitant]
  15. RHINOCORT AQUA [Concomitant]
  16. LIDODERM PATCH [Concomitant]
     Indication: PREMEDICATION
  17. TYLENOL WITH CODEINE [Concomitant]
  18. FLEXERIL [Concomitant]
  19. XOPENEX [Concomitant]
  20. ALVESCO [Concomitant]
  21. PRO AIR [Concomitant]
  22. CENTRUM SILVER [Concomitant]
  23. TYLENOL [Concomitant]
  24. BACTROBAN [Concomitant]
  25. ZONALON CREAM [Concomitant]
  26. ALLEGRA-D [Concomitant]
  27. HEPARIN [Concomitant]
  28. LIDOCAINE PRILOCAINE [Concomitant]
  29. ASPIRIN [Concomitant]
  30. CLINDAMYCIN [Concomitant]
  31. TYLENOL EXTRA STRENGTH [Concomitant]

REACTIONS (3)
  - Bronchitis [Unknown]
  - Lower respiratory tract infection [Unknown]
  - Chills [Recovered/Resolved]
